FAERS Safety Report 10486593 (Version 1)
Quarter: 2014Q4

REPORT INFORMATION
  Report Type: Report from Study
  Country: GB (occurrence: GB)
  Receive Date: 20141001
  Receipt Date: 20141001
  Transmission Date: 20150528
  Serious: Yes (Other)
  Sender: FDA-Public Use
  Company Number: GB-AMGEN-GBRSP2014074053

PATIENT
  Sex: Female

DRUGS (1)
  1. PROLIA [Suspect]
     Active Substance: DENOSUMAB
     Indication: OSTEOPOROSIS POSTMENOPAUSAL
     Dosage: UNK
     Route: 065

REACTIONS (12)
  - Activities of daily living impaired [Unknown]
  - Weight decreased [Unknown]
  - Osteoarthritis [Unknown]
  - Depression [Unknown]
  - Gastrooesophageal reflux disease [Unknown]
  - Immobile [Unknown]
  - Hypertension [Unknown]
  - Hyperlipidaemia [Unknown]
  - General physical condition abnormal [Unknown]
  - Back pain [Unknown]
  - Urinary incontinence [Unknown]
  - Asthenia [Unknown]
